FAERS Safety Report 4414938-2 (Version None)
Quarter: 2004Q3

REPORT INFORMATION
  Report Type: 
  Country: None (occurrence: None)
  Receive Date: 20040804
  Receipt Date: 20040707
  Transmission Date: 20050211
  Serious: Yes (Life-Threatening, Hospitalization, Other)
  Sender: FDA-Public Use
  Company Number: JP-BRISTOL-MYERS SQUIBB COMPANY-12634275

PATIENT
  Age: 77 Year
  Sex: Male

DRUGS (7)
  1. TAXOL [Suspect]
     Indication: LUNG NEOPLASM MALIGNANT
     Dosage: THERAPY DATES: 14-JUN TO 21-JUN-2004
     Route: 042
     Dates: start: 20040621, end: 20040621
  2. PARAPLATIN [Suspect]
     Indication: LUNG NEOPLASM MALIGNANT
     Dosage: AUC 6
     Route: 042
     Dates: start: 20040614, end: 20040614
  3. LENOGRASTIM [Suspect]
     Route: 058
     Dates: start: 20040625, end: 20040628
  4. DEXAMETHASONE SODIUM PHOSPHATE [Concomitant]
     Route: 042
     Dates: start: 20040614, end: 20040621
  5. RANITIDINE HCL [Concomitant]
     Route: 042
     Dates: start: 20040614, end: 20040621
  6. DIPHENHYDRAMINE HCL [Concomitant]
     Route: 048
     Dates: start: 20040614, end: 20040621
  7. NASEA [Concomitant]
     Route: 042
     Dates: start: 20040614, end: 20040621

REACTIONS (2)
  - PULMONARY FIBROSIS [None]
  - RESPIRATORY FAILURE [None]
